FAERS Safety Report 19786762 (Version 2)
Quarter: 2021Q4

REPORT INFORMATION
  Report Type: Spontaneous
  Country: US (occurrence: US)
  Receive Date: 20210903
  Receipt Date: 20211011
  Transmission Date: 20220303
  Serious: Yes (Other)
  Sender: FDA-Public Use
  Company Number: US-PFIZER INC-202101127845

PATIENT
  Sex: Female
  Weight: 101.58 kg

DRUGS (1)
  1. LYRICA [Suspect]
     Active Substance: PREGABALIN
     Indication: Fibromyalgia
     Dosage: 150 MG, 2X/DAY

REACTIONS (2)
  - Hydrocephalus [Not Recovered/Not Resolved]
  - Memory impairment [Not Recovered/Not Resolved]
